FAERS Safety Report 6378479-8 (Version None)
Quarter: 2009Q3

REPORT INFORMATION
  Report Type: 
  Country: None (occurrence: None)
  Receive Date: 20090928
  Receipt Date: 20090922
  Transmission Date: 20100115
  Serious: Yes (Hospitalization)
  Sender: FDA-Public Use
  Company Number: US-BIOGENIDEC-2009BI030506

PATIENT
  Age: 49 Year
  Sex: Male

DRUGS (2)
  1. TYSABRI [Suspect]
     Indication: MULTIPLE SCLEROSIS
     Route: 042
     Dates: start: 20090210, end: 20090415
  2. BACLOFEN [Concomitant]
     Indication: MUSCLE SPASMS
     Dates: start: 20090101

REACTIONS (2)
  - CONVULSION [None]
  - URINARY TRACT INFECTION [None]
